FAERS Safety Report 5416239-2 (Version None)
Quarter: 2007Q3

REPORT INFORMATION
  Report Type: 
  Country: None (occurrence: None)
  Receive Date: 20070718
  Receipt Date: 20070213
  Transmission Date: 20080115
  Serious: Yes (Hospitalization, Other)
  Sender: FDA-Public Use
  Company Number: 2007011752

PATIENT
  Age: 54 Year
  Sex: Female
  Weight: 56.7 kg

DRUGS (2)
  1. CELEBREX [Suspect]
     Indication: ARACHNOIDITIS
     Dosage: 400 MG (200 MG,2 IN 1 D)
     Dates: start: 19991001
  2. CELEBREX [Suspect]
     Indication: BACK PAIN
     Dosage: 400 MG (200 MG,2 IN 1 D)
     Dates: start: 19991001

REACTIONS (1)
  - PULMONARY EMBOLISM [None]
